FAERS Safety Report 6756291-5 (Version None)
Quarter: 2010Q2

REPORT INFORMATION
  Report Type: 
  Country: None (occurrence: None)
  Receive Date: 20100604
  Receipt Date: 20100525
  Transmission Date: 20101027
  Serious: Yes (Other)
  Sender: FDA-Public Use
  Company Number: FR-JNJCH-2010009538

PATIENT
  Age: 50 Year
  Sex: Female

DRUGS (1)
  1. LISTERINE FRESH MINT [Suspect]
     Indication: DENTAL DISORDER PROPHYLAXIS
     Dosage: TEXT:UNKNOWN
     Route: 048

REACTIONS (2)
  - TOOTH DISORDER [None]
  - TOOTHACHE [None]
